FAERS Safety Report 13462438 (Version 1)
Quarter: 2017Q2

REPORT INFORMATION
  Report Type: Spontaneous
  Country: RO (occurrence: RO)
  Receive Date: 20170420
  Receipt Date: 20170420
  Transmission Date: 20170830
  Serious: Yes (Other)
  Sender: FDA-Public Use
  Company Number: RO-PFIZER INC-2017166594

PATIENT

DRUGS (1)
  1. CYTOTEC [Suspect]
     Active Substance: MISOPROSTOL
     Indication: INDUCED LABOUR
     Dosage: UNK
     Route: 064

REACTIONS (9)
  - Epilepsy [Unknown]
  - Quadriparesis [Unknown]
  - Convulsion neonatal [Unknown]
  - Exposure during pregnancy [Unknown]
  - Paralysis [Unknown]
  - Hypokinesia [Unknown]
  - Intellectual disability [Unknown]
  - Hypoxic-ischaemic encephalopathy [Unknown]
  - Underweight [Unknown]
